FAERS Safety Report 15394934 (Version 6)
Quarter: 2018Q4

REPORT INFORMATION
  Report Type: Report from Study
  Country: None (occurrence: GB)
  Receive Date: 20180918
  Receipt Date: 20181026
  Transmission Date: 20190204
  Serious: Yes (Death, Hospitalization, Other)
  Sender: FDA-Public Use
  Company Number: GB-ABBVIE-18S-167-2485951-00

PATIENT
  Age: 75 Year
  Sex: Female

DRUGS (3)
  1. DUODOPA [Suspect]
     Active Substance: CARBIDOPA\LEVODOPA
     Indication: PARKINSON^S DISEASE
     Dosage: 100ML CASSETTE ?1 DAILY
     Route: 050
  2. AMPICILLIN [Concomitant]
     Active Substance: AMPICILLIN
     Indication: PRODUCT USED FOR UNKNOWN INDICATION
     Route: 065
  3. METRONIDAZOLE. [Concomitant]
     Active Substance: METRONIDAZOLE
     Indication: PRODUCT USED FOR UNKNOWN INDICATION
     Route: 065

REACTIONS (16)
  - Fall [Unknown]
  - Diarrhoea [Unknown]
  - Oxygen saturation decreased [Unknown]
  - Malignant peritoneal neoplasm [Unknown]
  - Lung neoplasm malignant [Fatal]
  - Uterine cancer [Unknown]
  - Lung infection [Unknown]
  - Weight decreased [Unknown]
  - Peritoneal carcinoma metastatic [Unknown]
  - Malaise [Unknown]
  - Dyskinesia [Unknown]
  - Dyspnoea [Fatal]
  - Nausea [Unknown]
  - Restlessness [Unknown]
  - Stress [Unknown]
  - Dyspnoea [Not Recovered/Not Resolved]

NARRATIVE: CASE EVENT DATE: 2018
